FAERS Safety Report 9695857 (Version 9)
Quarter: 2014Q1

REPORT INFORMATION
  Report Type: Report from Study
  Country: US (occurrence: US)
  Receive Date: 20131119
  Receipt Date: 20140211
  Transmission Date: 20141002
  Serious: Yes (Hospitalization)
  Sender: FDA-Public Use
  Company Number: US-PFIZER INC-2013323923

PATIENT
  Age: 48 Year
  Sex: Female

DRUGS (15)
  1. OXALIPLATIN [Suspect]
     Indication: COLORECTAL CANCER METASTATIC
     Dosage: 85 MG/M2, 2X/WEEK
     Route: 042
     Dates: start: 20130723
  2. FLUOROURACIL [Suspect]
     Indication: COLORECTAL CANCER METASTATIC
     Dosage: 2400 MG, EVERY 14 DAYS
     Route: 041
     Dates: start: 20130723, end: 20131029
  3. FLUOROURACIL [Suspect]
     Dosage: 400 MG, EVERY 14 DAYS
     Route: 040
     Dates: start: 20130723, end: 20131029
  4. IRINOTECAN HCL [Suspect]
     Indication: COLORECTAL CANCER METASTATIC
     Dosage: 180 MG, EVERY 14 DAYS
     Route: 041
     Dates: start: 20130820, end: 20131029
  5. BEVACIZUMAB [Suspect]
     Indication: COLORECTAL CANCER METASTATIC
     Dosage: 5 MG/KG, EVERY 14 DAYS
     Route: 041
     Dates: start: 20130723, end: 20131029
  6. CALCIUM FOLINATE [Suspect]
     Indication: COLORECTAL CANCER METASTATIC
     Dosage: 400 MG, EVERY 14 DAYS
     Route: 041
     Dates: start: 20130723, end: 20131029
  7. AMLODIPINE BESYLATE [Concomitant]
     Dosage: 2.5 MG, UNK
     Dates: start: 20131015
  8. COLACE [Concomitant]
     Dosage: 200 MG, UNK
     Dates: start: 20130710
  9. BENICAR HCT [Concomitant]
     Dosage: 40-12.5 MG
     Dates: start: 20130612
  10. DEXAMETHASONE [Concomitant]
     Dosage: 4 MG, UNK
     Dates: start: 20130718
  11. ATROPINE SULFATE/DIPHENOXYLATE HYDROCHLORIDE [Concomitant]
     Dosage: TOTAL DAILY DOSE 7.5-0.075
     Dates: start: 20130905
  12. IBUPROFEN [Concomitant]
     Dosage: 600 MG, UNK
     Dates: start: 20130710
  13. LABETALOL HYDROCHLORIDE [Concomitant]
     Dosage: 1200 MG, UNK
     Dates: start: 20130612
  14. LIDOCAINE HYDROCHLORIDE/PRILOCAINE HYDROCHLORIDE [Concomitant]
     Dosage: TOTAL DAILY DOSE 2.5-2.5%
     Dates: start: 20130718
  15. PROCHLORPERAZINE [Concomitant]
     Dosage: 10 MG, UNK
     Dates: start: 20130718

REACTIONS (1)
  - Device related infection [Recovered/Resolved]
